FAERS Safety Report 10051765 (Version 3)
Quarter: 2014Q2

REPORT INFORMATION
  Report Type: Spontaneous
  Country: RS (occurrence: RS)
  Receive Date: 20140402
  Receipt Date: 20140422
  Transmission Date: 20141212
  Serious: Yes (Other)
  Sender: FDA-Public Use
  Company Number: RS-ROCHE-1369767

PATIENT
  Sex: Female

DRUGS (4)
  1. BONVIVA [Suspect]
     Indication: OSTEOPOROSIS
     Dosage: 1X 3 MG QUARTERLY
     Route: 041
     Dates: start: 20091201, end: 201009
  2. BONVIVA [Suspect]
     Dosage: 1X3MG QUARTERLY
     Route: 041
     Dates: start: 201202, end: 20140309
  3. VIGANTOL ^BAYER^ [Suspect]
     Indication: OSTEOPOROSIS
     Route: 048
  4. IDEOS [Concomitant]
     Route: 065

REACTIONS (1)
  - Gamma-glutamyltransferase increased [Unknown]
